FAERS Safety Report 17452572 (Version 1)
Quarter: 2020Q1

REPORT INFORMATION
  Report Type: Spontaneous
  Country: GB (occurrence: GB)
  Receive Date: 20200224
  Receipt Date: 20200224
  Transmission Date: 20200409
  Serious: Yes (Hospitalization)
  Sender: FDA-Public Use
  Company Number: GB-TEVA-2020-GB-1190739

PATIENT
  Age: 65 Year
  Sex: Male
  Weight: 72 kg

DRUGS (15)
  1. ACETYLCYSTEINE. [Concomitant]
     Active Substance: ACETYLCYSTEINE
     Indication: HEPATIC FUNCTION ABNORMAL
     Dosage: 7.2G IN 1L N. SALINE INTRAVENOUS OVER 16 HOUR.
     Dates: start: 20200114, end: 20200115
  2. URSODEOXYCHOLIC ACID [Concomitant]
     Active Substance: URSODIOL
     Dosage: 750 MG
     Dates: start: 20200113, end: 20200114
  3. VITAMIN K [Concomitant]
     Active Substance: PHYTONADIONE
     Indication: HEPATIC FUNCTION ABNORMAL
     Dosage: AS NEEDED, 10 MG
     Route: 042
     Dates: start: 20200104, end: 20200114
  4. PREDNISOLONE. [Concomitant]
     Active Substance: PREDNISOLONE
     Indication: HEPATIC FUNCTION ABNORMAL
     Dosage: 40 MG
     Route: 048
     Dates: start: 20200106, end: 20200113
  5. LACTULOSE. [Concomitant]
     Active Substance: LACTULOSE
     Indication: CONSTIPATION
     Dates: start: 20200108, end: 20200108
  6. QUININE SULFATE. [Concomitant]
     Active Substance: QUININE SULFATE
     Indication: MUSCLE SPASMS
     Dosage: 300 MG
     Dates: start: 201707, end: 202001
  7. INHIXA [Concomitant]
     Active Substance: ENOXAPARIN SODIUM
     Dosage: 40 MG
     Route: 058
     Dates: start: 20200113, end: 20200116
  8. TENOFOVIR DISOPROXIL FUMARATE. [Suspect]
     Active Substance: TENOFOVIR DISOPROXIL FUMARATE
     Indication: CHRONIC HEPATITIS B
     Dosage: 245 MG
     Route: 048
     Dates: start: 20180701, end: 20200116
  9. TAZOCIN [Concomitant]
     Active Substance: PIPERACILLIN SODIUM\TAZOBACTAM SODIUM
     Dosage: 13.5 G
     Route: 042
     Dates: start: 20200114, end: 20200116
  10. URSODEOXYCHOLIC ACID [Concomitant]
     Active Substance: URSODIOL
     Indication: HEPATIC FUNCTION ABNORMAL
     Dosage: 1000 MG
     Dates: start: 20200114
  11. LANSOPRAZOLE. [Concomitant]
     Active Substance: LANSOPRAZOLE
     Indication: GASTRITIS PROPHYLAXIS
     Dates: start: 20200108
  12. ADCAL-D3 [Concomitant]
     Active Substance: CALCIUM CARBONATE\CHOLECALCIFEROL
     Dosage: 2 DF
     Route: 048
     Dates: start: 20200108, end: 20200113
  13. ATORVASTATIN [Concomitant]
     Active Substance: ATORVASTATIN
     Dosage: 20 MG
     Dates: start: 201906, end: 201912
  14. INARIGIVIR SOPROXIL. [Concomitant]
     Active Substance: INARIGIVIR SOPROXIL
     Indication: CHRONIC HEPATITIS B
     Dosage: 400 MG
     Dates: start: 201909, end: 20191220
  15. TAZOCIN [Concomitant]
     Active Substance: PIPERACILLIN SODIUM\TAZOBACTAM SODIUM
     Indication: HEPATIC FUNCTION ABNORMAL
     Dosage: STAT, 4.5 G
     Dates: start: 20200112, end: 20200112

REACTIONS (1)
  - Cholestasis [Recovering/Resolving]

NARRATIVE: CASE EVENT DATE: 20200103
